FAERS Safety Report 14575823 (Version 3)
Quarter: 2018Q3

REPORT INFORMATION
  Report Type: Report from Study
  Country: US (occurrence: US)
  Receive Date: 20180227
  Receipt Date: 20180829
  Transmission Date: 20181010
  Serious: Yes (Other)
  Sender: FDA-Public Use
  Company Number: PHEH2018US007872

PATIENT
  Age: 85 Year
  Sex: Female

DRUGS (1)
  1. ENTRESTO [Suspect]
     Active Substance: SACUBITRIL\VALSARTAN
     Indication: PRODUCT USED FOR UNKNOWN INDICATION
     Dosage: UNK
     Route: 048

REACTIONS (3)
  - Hypotension [Recovering/Resolving]
  - Drug ineffective [Unknown]
  - Ejection fraction decreased [Unknown]

NARRATIVE: CASE EVENT DATE: 20180215
